FAERS Safety Report 20723266 (Version 1)
Quarter: 2022Q2

REPORT INFORMATION
  Report Type: Spontaneous
  Country: US (occurrence: US)
  Receive Date: 20220419
  Receipt Date: 20220419
  Transmission Date: 20220720
  Serious: Yes (Hospitalization, Other)
  Sender: FDA-Public Use
  Company Number: US-CIPLA LTD.-2022US02315

PATIENT

DRUGS (12)
  1. CITALOPRAM [Suspect]
     Active Substance: CITALOPRAM HYDROBROMIDE
     Indication: Agitation
     Dosage: UNK
     Route: 065
  2. OLANZAPINE [Suspect]
     Active Substance: OLANZAPINE
     Indication: Dementia Alzheimer^s type
     Dosage: 2.5 MILLIGRAM, BID
     Route: 048
  3. QUETIAPINE [Suspect]
     Active Substance: QUETIAPINE
     Indication: Dementia Alzheimer^s type
     Dosage: 25 MILLIGRAM, BID
     Route: 048
  4. KETAMINE [Suspect]
     Active Substance: KETAMINE
     Indication: Dementia Alzheimer^s type
     Dosage: UNK
     Route: 065
  5. DEXTROMETHORPHAN HYDROBROMIDE\QUINIDINE SULFATE [Concomitant]
     Active Substance: DEXTROMETHORPHAN HYDROBROMIDE\QUINIDINE SULFATE
     Indication: Dementia Alzheimer^s type
     Dosage: UNK
     Route: 065
  6. GALANTAMINE [Concomitant]
     Active Substance: GALANTAMINE
     Indication: Dementia Alzheimer^s type
     Dosage: UNK
     Route: 065
  7. TRAZODONE [Concomitant]
     Active Substance: TRAZODONE HYDROCHLORIDE
     Indication: Agitation
     Dosage: UNK
     Route: 065
  8. CLONIDINE [Concomitant]
     Active Substance: CLONIDINE
     Indication: Agitation
     Dosage: 0.1 MILLIGRAM, BID
     Route: 065
  9. CLONIDINE [Concomitant]
     Active Substance: CLONIDINE
     Dosage: 0.2 MILLIGRAM, BID
     Route: 065
  10. PRAZOSIN [Concomitant]
     Active Substance: PRAZOSIN
     Indication: Agitation
     Dosage: 1 MILLIGRAM, QD NIGHTLY
     Route: 065
  11. LORAZEPAM [Concomitant]
     Active Substance: LORAZEPAM
     Indication: Agitation
     Dosage: UNK
     Route: 065
  12. MELATONIN [Concomitant]
     Active Substance: MELATONIN
     Indication: Dementia Alzheimer^s type
     Dosage: UNK
     Route: 065

REACTIONS (5)
  - Paradoxical drug reaction [Recovering/Resolving]
  - Aggression [Recovering/Resolving]
  - Akathisia [Recovering/Resolving]
  - Off label use [Unknown]
  - Product use in unapproved indication [Unknown]

NARRATIVE: CASE EVENT DATE: 20200101
